FAERS Safety Report 13393076 (Version 1)
Quarter: 2017Q1

REPORT INFORMATION
  Report Type: Spontaneous
  Country: NO (occurrence: NO)
  Receive Date: 20170331
  Receipt Date: 20170331
  Transmission Date: 20170429
  Serious: Yes (Other)
  Sender: FDA-Public Use
  Company Number: NO-JNJFOC-20170332899

PATIENT
  Age: 76 Year
  Sex: Male

DRUGS (6)
  1. ZYTIGA [Suspect]
     Active Substance: ABIRATERONE ACETATE
     Indication: PROSTATE CANCER METASTATIC
     Route: 048
     Dates: start: 20160310, end: 20160927
  2. PREDNISOLONE. [Concomitant]
     Active Substance: PREDNISOLONE
     Route: 048
     Dates: start: 20160310, end: 20160927
  3. MAREVAN [Concomitant]
     Active Substance: WARFARIN SODIUM
     Indication: PULMONARY EMBOLISM
     Route: 048
  4. RILUTEK [Interacting]
     Active Substance: RILUZOLE
     Indication: AMYOTROPHIC LATERAL SCLEROSIS
     Route: 048
  5. PREDNISOLONE. [Concomitant]
     Active Substance: PREDNISOLONE
     Route: 048
     Dates: start: 20160928
  6. ZOLADEX [Concomitant]
     Active Substance: GOSERELIN ACETATE
     Indication: PROSTATE CANCER
     Route: 058
     Dates: start: 201408

REACTIONS (2)
  - Muscular weakness [Recovering/Resolving]
  - Drug interaction [Unknown]

NARRATIVE: CASE EVENT DATE: 201605
